FAERS Safety Report 10461735 (Version 1)
Quarter: 2014Q3

REPORT INFORMATION
  Report Type: Spontaneous
  Country: US (occurrence: None)
  Receive Date: 20140917
  Receipt Date: 20140917
  Transmission Date: 20150326
  Serious: No
  Sender: FDA-Public Use
  Company Number: None

PATIENT
  Age: 55 Year
  Sex: Female

DRUGS (7)
  1. COPAXONE [Concomitant]
     Active Substance: GLATIRAMER ACETATE
  2. NORCO [Concomitant]
     Active Substance: ACETAMINOPHEN\HYDROCODONE BITARTRATE
  3. AMPYRA [Suspect]
     Active Substance: DALFAMPRIDINE
     Indication: MULTIPLE SCLEROSIS
     Dosage: AMPYRA 10MG, Q12H, ORALLY
     Route: 048
     Dates: start: 20100726
  4. HCTZ [Concomitant]
     Active Substance: HYDROCHLOROTHIAZIDE
  5. WARFARIN [Concomitant]
     Active Substance: WARFARIN
  6. K-TAB [Concomitant]
     Active Substance: POTASSIUM CHLORIDE
  7. SACLOFEN [Concomitant]

REACTIONS (2)
  - Electrocardiogram abnormal [None]
  - Chest pain [None]

NARRATIVE: CASE EVENT DATE: 20140908
